FAERS Safety Report 16424280 (Version 1)
Quarter: 2019Q2

REPORT INFORMATION
  Report Type: Spontaneous
  Country: US (occurrence: US)
  Receive Date: 20190613
  Receipt Date: 20190613
  Transmission Date: 20190711
  Serious: No
  Sender: FDA-Public Use
  Company Number: US-TAKEDA-2014TEU000693

PATIENT
  Sex: Female

DRUGS (16)
  1. HYDROCHLOROTHIAZIDE. [Suspect]
     Active Substance: HYDROCHLOROTHIAZIDE
     Dosage: UNK
     Route: 065
  2. CLARINEX [Suspect]
     Active Substance: DESLORATADINE
     Dosage: UNK
     Route: 065
  3. CELEBREX [Suspect]
     Active Substance: CELECOXIB
     Dosage: UNK
     Route: 065
  4. PROTONIX [Suspect]
     Active Substance: PANTOPRAZOLE SODIUM
     Indication: PRODUCT USED FOR UNKNOWN INDICATION
     Dosage: UNK
     Route: 065
  5. METRONIDAZOLE. [Suspect]
     Active Substance: METRONIDAZOLE
     Dosage: UNK
     Route: 065
  6. ALTACE [Suspect]
     Active Substance: RAMIPRIL
     Dosage: UNK
     Route: 065
  7. PREVACID [Suspect]
     Active Substance: LANSOPRAZOLE
     Dosage: UNK
     Route: 065
  8. VIOXX [Suspect]
     Active Substance: ROFECOXIB
     Dosage: UNK
     Route: 065
  9. TALWIN [Suspect]
     Active Substance: PENTAZOCINE LACTATE
     Dosage: UNK
     Route: 065
  10. DIFLUCAN [Suspect]
     Active Substance: FLUCONAZOLE
     Dosage: UNK
     Route: 065
  11. ZANTAC [Suspect]
     Active Substance: RANITIDINE HYDROCHLORIDE
     Dosage: UNK
     Route: 065
  12. CORTISONE [Suspect]
     Active Substance: CORTISONE\HYDROCORTISONE
     Dosage: UNK
     Route: 065
  13. SINGULAIR [Suspect]
     Active Substance: MONTELUKAST SODIUM
     Dosage: UNK
     Route: 065
  14. BEXTRA [Suspect]
     Active Substance: VALDECOXIB
     Dosage: UNK
     Route: 065
  15. AZOPT [Suspect]
     Active Substance: BRINZOLAMIDE
     Dosage: UNK
     Route: 065
  16. VALIUM [Suspect]
     Active Substance: DIAZEPAM
     Dosage: UNK
     Route: 065

REACTIONS (1)
  - Drug hypersensitivity [Unknown]
